FAERS Safety Report 20438788 (Version 4)
Quarter: 2022Q1

REPORT INFORMATION
  Report Type: Report from Study
  Country: US (occurrence: US)
  Receive Date: 20220207
  Receipt Date: 20220326
  Transmission Date: 20220424
  Serious: No
  Sender: FDA-Public Use
  Company Number: US-NOVARTISTESTPH-NVSC2022US026321

PATIENT
  Sex: Female

DRUGS (1)
  1. COSENTYX [Suspect]
     Active Substance: SECUKINUMAB
     Indication: Psoriatic arthropathy
     Dosage: 300 MG, QMO (EVERY FOUR WEEKS)
     Route: 058

REACTIONS (5)
  - Bone pain [Unknown]
  - Pain [Unknown]
  - Illness [Unknown]
  - Arthritis [Unknown]
  - Psoriasis [Unknown]
